FAERS Safety Report 23204263 (Version 1)
Quarter: 2023Q4

REPORT INFORMATION
  Report Type: Spontaneous
  Country: US (occurrence: US)
  Receive Date: 20231120
  Receipt Date: 20231120
  Transmission Date: 20240110
  Serious: No
  Sender: FDA-Public Use
  Company Number: US-SANDOZ-SDZ2023US055772

PATIENT
  Sex: Female

DRUGS (1)
  1. ESTRADIOL [Suspect]
     Active Substance: ESTRADIOL
     Indication: Product used for unknown indication
     Dosage: 0.075MG/24H 8TT, 2X A WEEK
     Route: 062

REACTIONS (3)
  - Product packaging quantity issue [Unknown]
  - Product contamination [Unknown]
  - Product dose omission issue [Unknown]
